FAERS Safety Report 17635725 (Version 3)
Quarter: 2020Q2

REPORT INFORMATION
  Report Type: Report from Study
  Country: None (occurrence: US)
  Receive Date: 20200406
  Receipt Date: 20200511
  Transmission Date: 20200713
  Serious: Yes (Hospitalization, Other)
  Sender: FDA-Public Use
  Company Number: US-ABBVIE-20K-163-3280858-00

PATIENT
  Age: 43 Year
  Sex: Female

DRUGS (1)
  1. HUMIRA [Suspect]
     Active Substance: ADALIMUMAB
     Indication: HIDRADENITIS
     Route: 058

REACTIONS (15)
  - Hernia [Recovering/Resolving]
  - Migraine [Recovering/Resolving]
  - Anosmia [Recovering/Resolving]
  - Nephrolithiasis [Recovering/Resolving]
  - Kidney infection [Not Recovered/Not Resolved]
  - Viral infection [Recovering/Resolving]
  - Dizziness [Recovering/Resolving]
  - Sneezing [Recovering/Resolving]
  - Dyspnoea [Recovered/Resolved]
  - Lung disorder [Recovering/Resolving]
  - Dyspnoea [Recovering/Resolving]
  - Abscess [Unknown]
  - Influenza [Recovering/Resolving]
  - Hyperhidrosis [Recovering/Resolving]
  - Weight decreased [Not Recovered/Not Resolved]

NARRATIVE: CASE EVENT DATE: 202002
